FAERS Safety Report 7864883-5 (Version None)
Quarter: 2011Q4

REPORT INFORMATION
  Report Type: 
  Country: None (occurrence: None)
  Receive Date: 20111028
  Receipt Date: 20100913
  Transmission Date: 20120403
  Serious: No
  Sender: FDA-Public Use
  Company Number: US-GLAXOSMITHKLINE-A0880833A

PATIENT
  Sex: Female

DRUGS (11)
  1. DILTIAZEM HCL [Concomitant]
  2. ADVAIR DISKUS 100/50 [Suspect]
     Indication: ASTHMA
     Dosage: 1PUFF TWICE PER DAY
     Route: 055
  3. LEVOXYL [Concomitant]
  4. FISH OIL [Concomitant]
  5. VENTOLIN DS [Concomitant]
  6. LISINOPRIL [Concomitant]
  7. CALCIUM CARBONATE [Concomitant]
  8. VITAMIN C,D,E [Concomitant]
  9. SIMVASTATIN [Concomitant]
  10. ASPIRIN [Concomitant]
  11. MULTI-VITAMIN [Concomitant]

REACTIONS (2)
  - COUGH [None]
  - PRODUCT QUALITY ISSUE [None]
